FAERS Safety Report 9508639 (Version 1)
Quarter: 2013Q1

REPORT INFORMATION
  Report Type: Spontaneous
  Country: US (occurrence: None)
  Receive Date: 20130305
  Receipt Date: 20130305
  Transmission Date: 20140127
  Serious: Yes (Other)
  Sender: FDA-Public Use
  Company Number: 163-21880-12082157

PATIENT
  Age: 58 Year
  Sex: Female
  Weight: 53.52 kg

DRUGS (6)
  1. REVLIMID [Suspect]
     Indication: PLASMA CELL MYELOMA
     Dosage: 5 MG, EVERY 72 HOURS X 21 DAYS, PO
     Route: 048
     Dates: start: 20111001
  2. VITAMIN B12 (CYANOCOBALAMIN) [Concomitant]
  3. COUMADIN (WARFARIN SODIUM) [Concomitant]
  4. GABAPENTIN [Concomitant]
  5. HYDROCODONE/APAP (VICODIN) [Concomitant]
  6. LOMOTIL [Concomitant]

REACTIONS (1)
  - Vitamin D decreased [None]
